FAERS Safety Report 7486828-2 (Version None)
Quarter: 2011Q2

REPORT INFORMATION
  Report Type: 
  Country: None (occurrence: None)
  Receive Date: 20110517
  Receipt Date: 20110512
  Transmission Date: 20111010
  Serious: Yes (Death)
  Sender: FDA-Public Use
  Company Number: JP-BAYER-2011-030297

PATIENT
  Age: 84 Year
  Sex: Male

DRUGS (5)
  1. ADONA [Concomitant]
     Dosage: DAILY DOSE 100 MG
     Route: 042
     Dates: start: 20101230, end: 20101231
  2. AMINOACETIC ACID/CYSTEINE/GLYCYRRHIZIC ACID [Concomitant]
     Dosage: DAILY DOSE 40 ML
     Route: 042
     Dates: start: 20101227, end: 20101231
  3. CIPROFLOXACIN [Suspect]
     Indication: PNEUMONIA
     Dosage: 300 MG, BID
     Route: 041
     Dates: start: 20101229, end: 20101231
  4. TRANSAMIN [Concomitant]
     Dosage: DAILY DOSE 2 G
     Route: 042
     Dates: start: 20101230, end: 20101231
  5. MULTI-VITAMIN [Concomitant]
     Dosage: DAILY DOSE 40 ML
     Route: 042
     Dates: start: 20101227, end: 20101231

REACTIONS (2)
  - PNEUMONIA [None]
  - GASTROINTESTINAL HAEMORRHAGE [None]
